FAERS Safety Report 12376462 (Version 2)
Quarter: 2016Q3

REPORT INFORMATION
  Report Type: Spontaneous
  Country: US (occurrence: US)
  Receive Date: 20160517
  Receipt Date: 20160901
  Transmission Date: 20161109
  Serious: No
  Sender: FDA-Public Use
  Company Number: US-RELYPSA-RLY2016000133

PATIENT
  Age: 72 Year
  Sex: Female

DRUGS (17)
  1. CRESTOR [Concomitant]
     Active Substance: ROSUVASTATIN CALCIUM
  2. CENTRUM SILVER                     /02363801/ [Concomitant]
     Active Substance: MINERALS\VITAMINS
  3. IRON [Concomitant]
     Active Substance: IRON
  4. BIOTIN [Concomitant]
     Active Substance: BIOTIN
  5. METOPROLOL SUCCINATE (ER) [Concomitant]
  6. VELTASSA [Suspect]
     Active Substance: PATIROMER
     Indication: HYPERKALAEMIA
     Dosage: 8.4 G, QD
     Route: 048
     Dates: start: 20160203
  7. LISINOPRIL. [Concomitant]
     Active Substance: LISINOPRIL
  8. FOLIC ACID. [Concomitant]
     Active Substance: FOLIC ACID
  9. SULFASALAZINE. [Concomitant]
     Active Substance: SULFASALAZINE
  10. OCUVITE [Concomitant]
     Active Substance: VITAMINS
  11. TYLENOL [Concomitant]
     Active Substance: ACETAMINOPHEN
  12. STOOL SOFTENER [Concomitant]
     Active Substance: DOCUSATE CALCIUM
  13. PRAMIPEXOLE DIHYDROCHLORIDE. [Concomitant]
     Active Substance: PRAMIPEXOLE DIHYDROCHLORIDE
  14. METHOTREXATE. [Concomitant]
     Active Substance: METHOTREXATE
  15. OMEPRAZOLE. [Concomitant]
     Active Substance: OMEPRAZOLE
  16. PREDNISONE. [Concomitant]
     Active Substance: PREDNISONE
  17. LASIX [Concomitant]
     Active Substance: FUROSEMIDE

REACTIONS (3)
  - Headache [Unknown]
  - Drug dose omission [Unknown]
  - Constipation [Unknown]

NARRATIVE: CASE EVENT DATE: 201602
